FAERS Safety Report 7984358-2 (Version None)
Quarter: 2011Q4

REPORT INFORMATION
  Report Type: 
  Country: None (occurrence: None)
  Receive Date: 20111216
  Receipt Date: 20111212
  Transmission Date: 20120403
  Serious: Yes (Hospitalization)
  Sender: FDA-Public Use
  Company Number: GB-TEVA-313045ISR

PATIENT
  Age: 67 Year
  Sex: Male

DRUGS (2)
  1. CHEMOTHERAPY [Concomitant]
  2. TAMSULOSIN HCL [Suspect]
     Indication: BLADDER OBSTRUCTION

REACTIONS (1)
  - TRANSIENT ISCHAEMIC ATTACK [None]
